FAERS Safety Report 9085472 (Version 1)
Quarter: 2013Q1

REPORT INFORMATION
  Report Type: Spontaneous
  Country: US (occurrence: US)
  Receive Date: 20130131
  Receipt Date: 20130131
  Transmission Date: 20140127
  Serious: No
  Sender: FDA-Public Use
  Company Number: US-009507513-1301USA013417

PATIENT
  Age: 62 Year
  Sex: Female

DRUGS (7)
  1. DULERA [Suspect]
     Indication: ASTHMA
     Dosage: 2 INHALATIONS, BID
     Route: 055
     Dates: start: 20121210, end: 20121224
  2. RISEDRONATE SODIUM [Concomitant]
  3. LOVASTATIN [Concomitant]
  4. VITAMINS (UNSPECIFIED) [Concomitant]
  5. CHOLECALCIFEROL [Concomitant]
  6. CALCIUM (UNSPECIFIED) [Concomitant]
  7. OMEGA-3 MARINE TRIGLYCERIDES [Concomitant]

REACTIONS (2)
  - Depression [Recovered/Resolved]
  - Gastrooesophageal reflux disease [Recovered/Resolved]
